FAERS Safety Report 5877243-3 (Version None)
Quarter: 2008Q3

REPORT INFORMATION
  Report Type: 
  Country: None (occurrence: None)
  Receive Date: 20080910
  Receipt Date: 20080829
  Transmission Date: 20090109
  Serious: Yes (Other)
  Sender: FDA-Public Use
  Company Number: US-PFIZER INC-2008073679

PATIENT

DRUGS (1)
  1. LYRICA [Suspect]

REACTIONS (2)
  - DIZZINESS [None]
  - FALL [None]
